FAERS Safety Report 11065708 (Version 1)
Quarter: 2015Q2

REPORT INFORMATION
  Report Type: Spontaneous
  Country: US (occurrence: US)
  Receive Date: 20150425
  Receipt Date: 20150425
  Transmission Date: 20150821
  Serious: Yes (Death)
  Sender: FDA-Public Use
  Company Number: US-ALLERGAN-1507388US

PATIENT
  Age: 90 Year

DRUGS (1)
  1. BOTOX [Suspect]
     Active Substance: ONABOTULINUMTOXINA
     Indication: MUSCLE SPASMS
     Dosage: 600 UNITS, SINGLE
     Route: 030

REACTIONS (2)
  - Overdose [Unknown]
  - Death [Fatal]

NARRATIVE: CASE EVENT DATE: 20150325
